FAERS Safety Report 4805506-9 (Version None)
Quarter: 2005Q4

REPORT INFORMATION
  Report Type: 
  Country: None (occurrence: None)
  Receive Date: 20051018
  Receipt Date: 20051013
  Transmission Date: 20060501
  Serious: Yes (Hospitalization)
  Sender: FDA-Public Use
  Company Number: OMPQ-PR-0510S-1391

PATIENT
  Age: 54 Year
  Sex: Female

DRUGS (1)
  1. OMNIPAQUE 140 [Suspect]
     Dosage: 70 ML, SINGLE DOSE, EXTRAVASATION
     Dates: start: 20051010, end: 20051010

REACTIONS (2)
  - COMPARTMENT SYNDROME [None]
  - EXTRAVASATION [None]
